FAERS Safety Report 7142024-X (Version None)
Quarter: 2010Q4

REPORT INFORMATION
  Report Type: 
  Country: None (occurrence: None)
  Receive Date: 20101207
  Receipt Date: 20101129
  Transmission Date: 20110411
  Serious: Yes (Death, Hospitalization)
  Sender: FDA-Public Use
  Company Number: A0896732A

PATIENT
  Age: 75 Year
  Sex: Female

DRUGS (2)
  1. ARIXTRA [Suspect]
     Dosage: 1INJ PER DAY
     Route: 058
     Dates: start: 20090101
  2. CHEMOTHERAPY [Concomitant]

REACTIONS (1)
  - ADENOCARCINOMA [None]
